FAERS Safety Report 22376861 (Version 2)
Quarter: 2023Q2

REPORT INFORMATION
  Report Type: Spontaneous
  Country: US (occurrence: US)
  Receive Date: 20230529
  Receipt Date: 20230531
  Transmission Date: 20230722
  Serious: No
  Sender: FDA-Public Use
  Company Number: US-SA-SAC20230525001182

PATIENT
  Age: 33 Year
  Sex: Female
  Weight: 77.11 kg

DRUGS (1)
  1. DUPIXENT [Suspect]
     Active Substance: DUPILUMAB
     Dosage: 300 MG, QOW
     Route: 058

REACTIONS (3)
  - Pain [Unknown]
  - Illness [Unknown]
  - Rash [Unknown]

NARRATIVE: CASE EVENT DATE: 20230501
